FAERS Safety Report 7387242-0 (Version None)
Quarter: 2011Q1

REPORT INFORMATION
  Report Type: 
  Country: None (occurrence: None)
  Receive Date: 20110331
  Receipt Date: 20110328
  Transmission Date: 20110831
  Serious: Yes (Other)
  Sender: FDA-Public Use
  Company Number: GB-PFIZER INC-2011024709

PATIENT
  Age: 76 Year
  Sex: Male

DRUGS (2)
  1. LIPITOR [Suspect]
     Dosage: UNKNOWN
  2. LIPITOR [Suspect]
     Dosage: 80 MG, UNK
     Route: 048

REACTIONS (2)
  - CORONARY ARTERY BYPASS [None]
  - MUSCLE ATROPHY [None]
